FAERS Safety Report 8834552 (Version 1)
Quarter: 2012Q4

REPORT INFORMATION
  Report Type: 
  Country: US (occurrence: US)
  Receive Date: 20121010
  Receipt Date: 20121010
  Transmission Date: 20130627
  Serious: Yes (Hospitalization, Other)
  Sender: FDA-Public Use
  Company Number: US-ELI_LILLY_AND_COMPANY-US201210000193

PATIENT
  Sex: Female

DRUGS (5)
  1. HUMALOG 25% LISPRO, 75% NPL [Suspect]
     Indication: DIABETES MELLITUS
     Dosage: UNK, prn
     Dates: start: 2001
  2. FUROSEMIDE [Concomitant]
  3. ALDACTONE [Concomitant]
  4. JANUMET [Concomitant]
  5. GLIPIZIDE [Concomitant]

REACTIONS (4)
  - Coronary arterial stent insertion [Recovered/Resolved]
  - Cardiac failure congestive [Recovering/Resolving]
  - Blood glucose increased [Unknown]
  - Vision blurred [Unknown]
